FAERS Safety Report 8133568 (Version 4)
Quarter: 2014Q3

REPORT INFORMATION
  Report Type: Report from Study
  Country: FR (occurrence: FR)
  Receive Date: 20110913
  Receipt Date: 20140706
  Transmission Date: 20150326
  Serious: Yes (Hospitalization, Other)
  Sender: FDA-Public Use
  Company Number: PHHY2011FR80127

PATIENT
  Age: 48 Year
  Sex: Male
  Weight: 53 kg

DRUGS (7)
  1. CALTRATE [Concomitant]
     Active Substance: CALCIUM CARBONATE
     Indication: HYPOCALCAEMIA
     Dosage: 500 MG, UNK
     Route: 048
     Dates: start: 20110614
  2. ICL670A [Suspect]
     Active Substance: DEFERASIROX
     Indication: HAEMOCHROMATOSIS
     Dosage: 1500 MG, DAILY
     Route: 048
     Dates: start: 20110405, end: 20110804
  3. ORACILLINE [Concomitant]
     Active Substance: PENICILLIN V
  4. TOCO [Concomitant]
     Active Substance: UNSPECIFIED INGREDIENT
     Dosage: BID
     Dates: start: 2000
  5. SPECIAFOLDINE [Concomitant]
     Active Substance: FOLIC ACID
  6. ICL670A [Suspect]
     Active Substance: DEFERASIROX
     Indication: THALASSAEMIA BETA
     Dosage: 1000 MG, DAILY
     Route: 048
     Dates: start: 20070919
  7. ASPEGIC [Concomitant]
     Active Substance: ASPIRIN DL-LYSINE

REACTIONS (8)
  - Abdominal pain upper [Recovering/Resolving]
  - Rectal haemorrhage [Unknown]
  - Gastrointestinal haemorrhage [Recovered/Resolved]
  - Melaena [Recovering/Resolving]
  - General physical health deterioration [Recovering/Resolving]
  - Gastric ulcer [Recovered/Resolved]
  - Haemoglobin decreased [Recovering/Resolving]
  - Platelet count increased [Recovering/Resolving]

NARRATIVE: CASE EVENT DATE: 201105
